FAERS Safety Report 14679695 (Version 1)
Quarter: 2018Q1

REPORT INFORMATION
  Report Type: Spontaneous
  Country: CA (occurrence: CA)
  Receive Date: 20180326
  Receipt Date: 20180326
  Transmission Date: 20180509
  Serious: Yes (Disabling, Other)
  Sender: FDA-Public Use
  Company Number: CA-BAYER-2018-051618

PATIENT
  Age: 41 Year
  Sex: Female

DRUGS (6)
  1. TAPAZOLE [Concomitant]
     Active Substance: METHIMAZOLE
     Dosage: UNK
     Route: 048
  2. MIRENA [Suspect]
     Active Substance: LEVONORGESTREL
     Indication: CONTRACEPTION
     Dosage: 20 MCG/24HR, CONT
     Route: 015
  3. CIPRALEX [Concomitant]
     Active Substance: ESCITALOPRAM OXALATE
     Dosage: UNK
  4. MIRENA [Suspect]
     Active Substance: LEVONORGESTREL
     Indication: CONTRACEPTION
  5. SYNTHROID [Concomitant]
     Active Substance: LEVOTHYROXINE SODIUM
     Dosage: UNK
  6. QUETIAPINE. [Concomitant]
     Active Substance: QUETIAPINE
     Dosage: UNK
     Route: 048

REACTIONS (25)
  - Irritability [Recovering/Resolving]
  - Nausea [Recovering/Resolving]
  - Myalgia [Recovering/Resolving]
  - Pigmentation disorder [Recovering/Resolving]
  - Abdominal pain [Recovering/Resolving]
  - Back pain [Recovering/Resolving]
  - Hyperacusis [Recovering/Resolving]
  - Hyperhidrosis [Recovering/Resolving]
  - Depressive symptom [Recovering/Resolving]
  - Hypertrichosis [Recovering/Resolving]
  - Alopecia [Recovering/Resolving]
  - Migraine [Recovering/Resolving]
  - Insomnia [Recovering/Resolving]
  - Amenorrhoea [Recovering/Resolving]
  - Disturbance in attention [Recovering/Resolving]
  - Hot flush [Recovering/Resolving]
  - Lack of spontaneous speech [Recovering/Resolving]
  - Libido decreased [Recovering/Resolving]
  - Nervousness [Recovering/Resolving]
  - Palpitations [Recovering/Resolving]
  - Thyroid disorder [Recovering/Resolving]
  - Dizziness [Recovering/Resolving]
  - Dry skin [Recovering/Resolving]
  - Decreased interest [Recovering/Resolving]
  - Depressed mood [Recovering/Resolving]
